FAERS Safety Report 14227557 (Version 3)
Quarter: 2018Q1

REPORT INFORMATION
  Report Type: Spontaneous
  Country: JP (occurrence: JP)
  Receive Date: 20171127
  Receipt Date: 20180126
  Transmission Date: 20180508
  Serious: Yes (Death, Hospitalization, Other)
  Sender: FDA-Public Use
  Company Number: JP-BAYER-2017-222576

PATIENT
  Age: 74 Year
  Sex: Male
  Weight: 51 kg

DRUGS (13)
  1. NEXAVAR [Suspect]
     Active Substance: SORAFENIB
     Indication: HEPATOCELLULAR CARCINOMA
     Dosage: 200 MG, TID
     Route: 048
     Dates: start: 20140421, end: 20171008
  2. TAURINE [Concomitant]
     Active Substance: TAURINE
     Dosage: UNK
     Dates: end: 20171029
  3. GASCON [Concomitant]
     Active Substance: DIMETHICONE
     Dosage: UNK
     Dates: end: 20171029
  4. HIRUDOID [Concomitant]
     Active Substance: GLYCOSAMINOGLYCANS
  5. ALCENOL [Concomitant]
     Active Substance: ATENOLOL
  6. DIART [Concomitant]
     Active Substance: AZOSEMIDE
     Dosage: UNK
     Dates: end: 20171029
  7. NIFEDIPINE. [Concomitant]
     Active Substance: NIFEDIPINE
  8. SPIRONOLACTONE. [Concomitant]
     Active Substance: SPIRONOLACTONE
     Dosage: UNK
     Dates: end: 20171029
  9. BIO-THREE [Concomitant]
     Active Substance: HERBALS
     Dosage: UNK
     Dates: end: 20171029
  10. LOPENA [Concomitant]
     Dosage: UNK
     Dates: end: 20171029
  11. URSO [Concomitant]
     Active Substance: URSODIOL
     Dosage: TABLET
     Dates: end: 20171029
  12. STIVARGA [Suspect]
     Active Substance: REGORAFENIB
     Indication: HEPATOCELLULAR CARCINOMA
     Dosage: 120 MG, QD
     Route: 048
     Dates: start: 20171016, end: 20171029
  13. JANUVIA [Concomitant]
     Active Substance: SITAGLIPTIN PHOSPHATE

REACTIONS (11)
  - Altered state of consciousness [Not Recovered/Not Resolved]
  - Alpha 1 foetoprotein increased [None]
  - Ammonia increased [None]
  - Renal impairment [Fatal]
  - Ascites [None]
  - Product use issue [None]
  - Mobility decreased [None]
  - Metastases to lung [None]
  - Decreased appetite [None]
  - Drug dose omission [None]
  - Electrolyte imbalance [None]

NARRATIVE: CASE EVENT DATE: 20161121
